FAERS Safety Report 5525088-6 (Version None)
Quarter: 2007Q4

REPORT INFORMATION
  Report Type: 
  Country: None (occurrence: None)
  Receive Date: 20071126
  Receipt Date: 20071120
  Transmission Date: 20080405
  Serious: Yes (Other)
  Sender: FDA-Public Use
  Company Number: GB-WYE-G00652007

PATIENT
  Sex: Female

DRUGS (2)
  1. EFFEXOR XR [Suspect]
     Route: 048
     Dates: start: 20030101
  2. EFFEXOR XR [Suspect]
     Route: 048

REACTIONS (1)
  - ABSCESS [None]
